FAERS Safety Report 7360277-X (Version None)
Quarter: 2011Q1

REPORT INFORMATION
  Report Type: 
  Country: None (occurrence: None)
  Receive Date: 20110318
  Receipt Date: 20110307
  Transmission Date: 20110831
  Serious: Yes (Hospitalization)
  Sender: FDA-Public Use
  Company Number: ES-CELGENEUS-144-21880-11022523

PATIENT
  Age: 62 Year
  Sex: Male

DRUGS (6)
  1. SEPTRIN [Concomitant]
     Route: 048
  2. DEXAMETHASONE [Concomitant]
     Indication: MULTIPLE MYELOMA
     Route: 048
     Dates: start: 20090401
  3. ACFOL [Concomitant]
     Route: 048
  4. REVLIMID [Suspect]
     Indication: MULTIPLE MYELOMA
     Dosage: 25 MILLIGRAM
     Route: 048
     Dates: start: 20090401, end: 20110101
  5. CLEXANE [Concomitant]
     Route: 058
     Dates: start: 20090401
  6. ZOMETA [Concomitant]
     Route: 051

REACTIONS (1)
  - ARTERIAL THROMBOSIS LIMB [None]
